FAERS Safety Report 18051231 (Version 3)
Quarter: 2020Q3

REPORT INFORMATION
  Report Type: Spontaneous
  Country: JP (occurrence: JP)
  Receive Date: 20200721
  Receipt Date: 20200810
  Transmission Date: 20201103
  Serious: Yes (Other)
  Sender: FDA-Public Use
  Company Number: JP-ROCHE-2644345

PATIENT
  Age: 72 Year
  Sex: Male

DRUGS (1)
  1. BEOVU [Suspect]
     Active Substance: BROLUCIZUMAB-DBLL
     Indication: AGE-RELATED MACULAR DEGENERATION
     Route: 031
     Dates: start: 20200608

REACTIONS (7)
  - Hypopyon [Unknown]
  - Eye pain [Recovered/Resolved]
  - Eye inflammation [Recovered/Resolved]
  - Eye inflammation [Recovering/Resolving]
  - Anterior chamber inflammation [Unknown]
  - Conjunctival hyperaemia [Recovered/Resolved]
  - Visual impairment [Recovering/Resolving]

NARRATIVE: CASE EVENT DATE: 20200611
